FAERS Safety Report 6863109-9 (Version None)
Quarter: 2010Q2

REPORT INFORMATION
  Report Type: 
  Country: None (occurrence: None)
  Receive Date: 20100528
  Receipt Date: 20100311
  Transmission Date: 20101027
  Serious: No
  Sender: FDA-Public Use
  Company Number: 008618

PATIENT

DRUGS (1)
  1. LACOSAMIDE [Suspect]
     Dosage: (ORAL)
     Route: 048

REACTIONS (1)
  - HALLUCINATION [None]
